FAERS Safety Report 8909248 (Version 1)
Quarter: 2012Q4

REPORT INFORMATION
  Report Type: Spontaneous
  Country: DK (occurrence: None)
  Receive Date: 20121106
  Receipt Date: 20121106
  Transmission Date: 20130627
  Serious: Yes (Other)
  Sender: FDA-Public Use
  Company Number: 2012MA012812

PATIENT
  Age: 71 Year
  Sex: Female

DRUGS (4)
  1. IRINOTECAN HYDROCHLORIDE [Suspect]
     Indication: METASTATIC COLORECTAL CANCER
  2. CALCIUM FOLINATE (CALCIUM FOLINATE [Suspect]
     Indication: METASTATIC COLORECTAL CANCER
     Route: 042
  3. ELOXATIN [Suspect]
     Indication: METASTATIC COLORECTAL CANCER
     Route: 042
  4. 5-FU [Suspect]
     Indication: METASTATIC COLORECTAL CANCER

REACTIONS (7)
  - Nephropathy toxic [None]
  - Tongue blistering [None]
  - Constipation [None]
  - Neurotoxicity [None]
  - Paraesthesia [None]
  - Asthenia [None]
  - Areflexia [None]
